FAERS Safety Report 9694643 (Version 1)
Quarter: 2013Q4

REPORT INFORMATION
  Report Type: Spontaneous
  Country: US (occurrence: US)
  Receive Date: 20131119
  Receipt Date: 20131119
  Transmission Date: 20140711
  Serious: Yes (Hospitalization, Other)
  Sender: FDA-Public Use
  Company Number: US-ROCHE-1301900

PATIENT
  Age: 54 Year
  Sex: Female

DRUGS (3)
  1. RIBAVIRIN [Suspect]
     Indication: HEPATITIS C
     Route: 065
     Dates: start: 201206, end: 20121114
  2. PEG-INTERFERON ALFA 2A [Suspect]
     Indication: HEPATITIS C
     Dosage: SHOT
     Route: 065
     Dates: start: 201206, end: 20121114
  3. RITONAVIR [Suspect]
     Indication: HEPATITIS C
     Route: 065
     Dates: start: 201206, end: 20121114

REACTIONS (3)
  - Anaemia [Unknown]
  - Nervous system disorder [Unknown]
  - Gait disturbance [Unknown]
